FAERS Safety Report 21513556 (Version 5)
Quarter: 2024Q2

REPORT INFORMATION
  Report Type: Report from Study
  Country: DE (occurrence: DE)
  Receive Date: 20221027
  Receipt Date: 20240627
  Transmission Date: 20240715
  Serious: Yes (Hospitalization)
  Sender: FDA-Public Use
  Company Number: DE-ROCHE-3076443

PATIENT
  Age: 44 Year
  Sex: Female

DRUGS (1)
  1. OCREVUS [Suspect]
     Active Substance: OCRELIZUMAB
     Indication: Primary progressive multiple sclerosis
     Route: 042
     Dates: start: 20210805

REACTIONS (7)
  - Coronavirus infection [Recovered/Resolved]
  - Abdominal pain [Recovered/Resolved]
  - Adrenal neoplasm [Recovered/Resolved]
  - Joint stiffness [Not Recovered/Not Resolved]
  - Premenstrual syndrome [Recovering/Resolving]
  - Influenza like illness [Recovered/Resolved]
  - Bacterial vaginosis [Not Recovered/Not Resolved]

NARRATIVE: CASE EVENT DATE: 20211101
